FAERS Safety Report 7273932-7 (Version None)
Quarter: 2011Q1

REPORT INFORMATION
  Report Type: 
  Country: None (occurrence: None)
  Receive Date: 20110203
  Receipt Date: 20110131
  Transmission Date: 20110831
  Serious: Yes (Other)
  Sender: FDA-Public Use
  Company Number: US-PFIZER INC-2010027596

PATIENT
  Sex: Female
  Weight: 63.492 kg

DRUGS (5)
  1. LYRICA [Suspect]
     Indication: NEUROPATHY PERIPHERAL
     Dosage: 300 MG, 2X/DAY
     Route: 048
     Dates: start: 20070101
  2. LYRICA [Suspect]
     Indication: FIBROMYALGIA
  3. CELEBREX [Suspect]
     Indication: ARTHRITIS
     Dosage: 200 MG, DAILY
     Route: 048
     Dates: start: 20080101, end: 20110115
  4. SYNTHROID [Concomitant]
     Indication: THYROID DISORDER
     Dosage: UNK
  5. TEMAZEPAM [Concomitant]
     Dosage: UNK

REACTIONS (4)
  - HEADACHE [None]
  - VITAMIN D DECREASED [None]
  - DRUG WITHDRAWAL SYNDROME [None]
  - NAUSEA [None]
